FAERS Safety Report 20109603 (Version 2)
Quarter: 2023Q1

REPORT INFORMATION
  Report Type: Report from Study
  Country: US (occurrence: US)
  Receive Date: 20211124
  Receipt Date: 20230313
  Transmission Date: 20230418
  Serious: Yes (Other)
  Sender: FDA-Public Use
  Company Number: US-TAKEDA-2021TUS073964

PATIENT
  Age: 50 Year
  Sex: Female

DRUGS (8)
  1. TEDUGLUTIDE [Suspect]
     Active Substance: TEDUGLUTIDE
     Indication: Short-bowel syndrome
     Dosage: 3.6 MILLIGRAM, 1/WEEK
     Route: 065
     Dates: start: 20140127
  2. TEDUGLUTIDE [Suspect]
     Active Substance: TEDUGLUTIDE
     Indication: Short-bowel syndrome
     Dosage: 3.6 MILLIGRAM, 1/WEEK
     Route: 065
     Dates: start: 20140127
  3. TEDUGLUTIDE [Suspect]
     Active Substance: TEDUGLUTIDE
     Indication: Short-bowel syndrome
     Dosage: 3.6 MILLIGRAM, 1/WEEK
     Route: 065
     Dates: start: 20140127
  4. TEDUGLUTIDE [Suspect]
     Active Substance: TEDUGLUTIDE
     Indication: Short-bowel syndrome
     Dosage: 3.6 MILLIGRAM, 1/WEEK
     Route: 065
     Dates: start: 20140127
  5. XIFAXAN [Concomitant]
     Active Substance: RIFAXIMIN
     Indication: Lactic acidosis
     Dosage: 550 MILLIGRAM, BID
     Route: 048
     Dates: start: 20211103
  6. METRONIDAZOLE [Concomitant]
     Active Substance: METRONIDAZOLE
     Indication: Lactic acidosis
     Dosage: 500 MILLIGRAM, TID
     Route: 048
     Dates: start: 20210804
  7. BACLOFEN [Concomitant]
     Active Substance: BACLOFEN
     Indication: Muscle spasms
     Dosage: 999.0 UNK, PRN
     Route: 048
     Dates: start: 201808
  8. ZOLPIDEM TARTRATE [Concomitant]
     Active Substance: ZOLPIDEM TARTRATE
     Indication: Sedative therapy
     Dosage: 5 MILLIGRAM, PRN
     Route: 048

REACTIONS (1)
  - Lactic acidosis [Recovered/Resolved]

NARRATIVE: CASE EVENT DATE: 20210501
